FAERS Safety Report 9210779 (Version 1)
Quarter: 2013Q2

REPORT INFORMATION
  Report Type: Spontaneous
  Country: CA (occurrence: CA)
  Receive Date: 20130404
  Receipt Date: 20130404
  Transmission Date: 20140414
  Serious: Yes (Other)
  Sender: FDA-Public Use
  Company Number: PHHY2013CA031274

PATIENT
  Sex: 0

DRUGS (2)
  1. SERTRALINE [Suspect]
  2. TAMSULOSIN [Suspect]

REACTIONS (2)
  - Drug interaction [Unknown]
  - Drug ineffective [Unknown]
